FAERS Safety Report 21046155 (Version 1)
Quarter: 2022Q3

REPORT INFORMATION
  Report Type: Spontaneous
  Country: CZ (occurrence: None)
  Receive Date: 20220706
  Receipt Date: 20220706
  Transmission Date: 20221026
  Serious: Yes (Disabling, Other)
  Sender: FDA-Public Use
  Company Number: 2022A238996

PATIENT
  Age: 73 Year
  Sex: Male

DRUGS (9)
  1. QUETIAPINE FUMARATE [Suspect]
     Active Substance: QUETIAPINE FUMARATE
     Indication: Head discomfort
     Route: 065
  2. DONEPEZIL HYDROCHLORIDE [Suspect]
     Active Substance: DONEPEZIL HYDROCHLORIDE
     Indication: Head discomfort
  3. ASPIRIN [Suspect]
     Active Substance: ASPIRIN
     Indication: Anticoagulant therapy
  4. SOLIFENACIN\TAMSULOSIN [Suspect]
     Active Substance: SOLIFENACIN\TAMSULOSIN
     Indication: Bladder disorder
  5. ROSUVASTATIN CALCIUM [Suspect]
     Active Substance: ROSUVASTATIN CALCIUM
     Indication: Blood cholesterol
  6. AKINETON [Suspect]
     Active Substance: BIPERIDEN HYDROCHLORIDE
     Indication: Head discomfort
  7. FINASTERIDE [Suspect]
     Active Substance: FINASTERIDE
     Indication: Bladder disorder
  8. EUTHYROX [Suspect]
     Active Substance: LEVOTHYROXINE SODIUM
     Indication: Thyroid disorder
  9. METOPROLOL TARTRATE [Suspect]
     Active Substance: METOPROLOL TARTRATE
     Indication: Blood pressure measurement

REACTIONS (6)
  - Somnolence [Unknown]
  - Dementia Alzheimer^s type [Unknown]
  - Bladder disorder [Unknown]
  - Hypokinesia [Unknown]
  - Apathy [Unknown]
  - Cardiac disorder [Unknown]
